FAERS Safety Report 5154724-1 (Version None)
Quarter: 2006Q4

REPORT INFORMATION
  Report Type: 
  Country: None (occurrence: None)
  Receive Date: 20061116
  Receipt Date: 20061116
  Transmission Date: 20070319
  Serious: No
  Sender: FDA-Public Use
  Company Number: None

PATIENT
  Sex: Female

DRUGS (2)
  1. ESTRADIOL [Suspect]
     Dosage: 0.006 WEEKLY TOPICAL
     Route: 061
     Dates: start: 20061005
  2. ESTRADIOL [Suspect]
     Dosage: 0.006 WEEKLY TOPICAL
     Route: 061
     Dates: start: 20061018

REACTIONS (2)
  - PHARMACEUTICAL PRODUCT COMPLAINT [None]
  - PRURITUS [None]
